FAERS Safety Report 5046509-1 (Version None)
Quarter: 2006Q3

REPORT INFORMATION
  Report Type: 
  Country: None (occurrence: None)
  Receive Date: 20060707
  Receipt Date: 20060707
  Transmission Date: 20061208
  Serious: Yes (Life-Threatening, Other)
  Sender: FDA-Public Use
  Company Number: None

PATIENT
  Age: 64 Year
  Sex: Female
  Weight: 81.6475 kg

DRUGS (3)
  1. CARBOPLATIN [Suspect]
     Indication: NEOPLASM MALIGNANT
     Dosage: 545 MG   EVERY MONTH    IV
     Route: 042
     Dates: start: 20060609, end: 20060706
  2. CARBOPLATIN [Suspect]
     Indication: SWEAT GLAND TUMOUR
     Dosage: 545 MG   EVERY MONTH    IV
     Route: 042
     Dates: start: 20060609, end: 20060706
  3. CARBOPLATIN [Suspect]

REACTIONS (7)
  - CHEST PAIN [None]
  - DYSPNOEA [None]
  - FAECAL INCONTINENCE [None]
  - HOT FLUSH [None]
  - MEMORY IMPAIRMENT [None]
  - NAUSEA [None]
  - RASH [None]
